FAERS Safety Report 7422778-5 (Version None)
Quarter: 2011Q2

REPORT INFORMATION
  Report Type: 
  Country: None (occurrence: None)
  Receive Date: 20110411
  Receipt Date: 20110330
  Transmission Date: 20111010
  Serious: Yes (Death, Hospitalization, Other)
  Sender: FDA-Public Use
  Company Number: 2007-03179

PATIENT
  Age: 59 Year
  Sex: Male

DRUGS (1)
  1. VELCADE [Suspect]
     Indication: MULTIPLE MYELOMA
     Dosage: 2.3 MG, CYCLIC, INTRAVENOUS
     Route: 042
     Dates: start: 20070213, end: 20070803

REACTIONS (5)
  - ATRIAL FIBRILLATION [None]
  - DYSGEUSIA [None]
  - MULTIPLE MYELOMA [None]
  - PNEUMONIA MYCOPLASMAL [None]
  - DISEASE PROGRESSION [None]
